FAERS Safety Report 8358041-8 (Version None)
Quarter: 2012Q2

REPORT INFORMATION
  Report Type: 
  Country: None (occurrence: None)
  Receive Date: 20120514
  Receipt Date: 20120507
  Transmission Date: 20120825
  Serious: Yes (Hospitalization)
  Sender: FDA-Public Use
  Company Number: TR-ABBOTT-12P-161-0933238-00

PATIENT
  Age: 69 Year
  Sex: Male

DRUGS (1)
  1. TARKA [Suspect]
     Indication: SUICIDE ATTEMPT
     Dosage: 21-180MG/2MG TABLETS
     Dates: start: 20120507, end: 20120507

REACTIONS (1)
  - SUICIDE ATTEMPT [None]
